FAERS Safety Report 19330889 (Version 2)
Quarter: 2021Q2

REPORT INFORMATION
  Report Type: Spontaneous
  Country: CN (occurrence: CN)
  Receive Date: 20210528
  Receipt Date: 20210629
  Transmission Date: 20210717
  Serious: Yes (Hospitalization, Other)
  Sender: FDA-Public Use
  Company Number: CN-ELI_LILLY_AND_COMPANY-CN202105007607

PATIENT
  Age: 74 Year
  Sex: Female
  Weight: 60 kg

DRUGS (3)
  1. HUMALOG MIX75/25 [Suspect]
     Active Substance: INSULIN LISPRO
     Dosage: 12 INTERNATIONAL UNIT, BID
     Route: 058
  2. GLUCOBAY [Concomitant]
     Active Substance: ACARBOSE
     Dosage: UNK, UNKNOWN
     Route: 065
  3. HUMALOG MIX75/25 [Suspect]
     Active Substance: INSULIN LISPRO
     Indication: DIABETES MELLITUS
     Dosage: UNK UNK, DAILY
     Route: 058

REACTIONS (5)
  - Cerebral infarction [Unknown]
  - Blood glucose increased [Unknown]
  - Renal disorder [Unknown]
  - Paralysis [Unknown]
  - Weight decreased [Unknown]

NARRATIVE: CASE EVENT DATE: 20210205
